FAERS Safety Report 22628010 (Version 1)
Quarter: 2023Q2

REPORT INFORMATION
  Report Type: Spontaneous
  Country: RU (occurrence: RU)
  Receive Date: 20230622
  Receipt Date: 20230622
  Transmission Date: 20230722
  Serious: Yes (Hospitalization)
  Sender: FDA-Public Use
  Company Number: RU-BIOGEN-2023BI01206214

PATIENT
  Age: 38 Year
  Sex: Female
  Weight: 39 kg

DRUGS (2)
  1. SPINRAZA [Suspect]
     Active Substance: NUSINERSEN
     Indication: Spinal muscular atrophy
     Dosage: 2.4 MG/1 ML: VIAL. 5 ML 1 PIECE
     Route: 050
     Dates: start: 20210728
  2. Ferretab (iron fumarate; folic acid) [Concomitant]
     Indication: Iron deficiency anaemia
     Route: 050

REACTIONS (1)
  - Cerebrospinal fluid leakage [Recovered/Resolved]

NARRATIVE: CASE EVENT DATE: 20230515
